FAERS Safety Report 15036129 (Version 1)
Quarter: 2018Q2

REPORT INFORMATION
  Report Type: Spontaneous
  Country: US (occurrence: US)
  Receive Date: 20180530
  Receipt Date: 20180530
  Transmission Date: 20180711
  Serious: Yes (Other)
  Sender: FDA-Public Use
  Company Number: None

PATIENT
  Age: 68 Year
  Sex: Male
  Weight: 103.42 kg

DRUGS (1)
  1. FLONASE SENSIMIST ALLERGY RELIEF [Suspect]
     Active Substance: FLUTICASONE FUROATE
     Route: 045
     Dates: start: 20180315, end: 20180515

REACTIONS (3)
  - Ageusia [None]
  - Product substitution issue [None]
  - Anosmia [None]

NARRATIVE: CASE EVENT DATE: 20180515
